FAERS Safety Report 7259631-6 (Version None)
Quarter: 2011Q1

REPORT INFORMATION
  Report Type: 
  Country: None (occurrence: None)
  Receive Date: 20110130
  Receipt Date: 20101208
  Transmission Date: 20110831
  Serious: No
  Sender: FDA-Public Use
  Company Number: US-ABBOTT-10P-163-0664501-00

PATIENT
  Age: 57 Year
  Sex: Male

DRUGS (6)
  1. VITAMIN B-12 [Concomitant]
     Indication: PRODUCT USED FOR UNKNOWN INDICATION
  2. FENTANYL [Concomitant]
     Indication: PAIN
     Dosage: PATCH
  3. HYDROCODONE [Concomitant]
     Indication: PAIN
  4. VENLAFAXINE [Concomitant]
     Indication: DEPRESSION
  5. BUTALBITAL 50 CAFF [Concomitant]
     Indication: MIGRAINE
  6. HUMIRA [Suspect]
     Indication: CROHN'S DISEASE
     Dates: start: 20100601

REACTIONS (5)
  - EYE INFECTION [None]
  - RASH PRURITIC [None]
  - TOOTH ABSCESS [None]
  - WOUND DRAINAGE [None]
  - RASH PAPULAR [None]
